FAERS Safety Report 4665065-0 (Version None)
Quarter: 2005Q2

REPORT INFORMATION
  Report Type: 
  Country: None (occurrence: None)
  Receive Date: 20050517
  Receipt Date: 20050504
  Transmission Date: 20051028
  Serious: Yes (Other)
  Sender: FDA-Public Use
  Company Number: 2005058767

PATIENT
  Sex: Female

DRUGS (1)
  1. BEXTRA [Suspect]
     Indication: UTERINE INFLAMMATION
     Dosage: 40 MG (40 MG, 1 IN 1 D), ORAL
     Route: 048
     Dates: start: 20041101, end: 20050301

REACTIONS (5)
  - DIZZINESS [None]
  - PYREXIA [None]
  - SKIN DISORDER [None]
  - SKIN IRRITATION [None]
  - VOMITING [None]
